FAERS Safety Report 6116944-9 (Version None)
Quarter: 2009Q1

REPORT INFORMATION
  Report Type: 
  Country: None (occurrence: None)
  Receive Date: 20090314
  Receipt Date: 20081231
  Transmission Date: 20090719
  Serious: No
  Sender: FDA-Public Use
  Company Number: US-ABBOTT-08P-163-0495459-00

PATIENT
  Sex: Female
  Weight: 136.2 kg

DRUGS (5)
  1. HUMIRA [Suspect]
     Indication: CROHN'S DISEASE
     Route: 058
     Dates: start: 20071201, end: 20081101
  2. HUMIRA [Suspect]
     Dates: start: 20081217
  3. COLAZOL [Concomitant]
     Indication: CROHN'S DISEASE
     Route: 048
  4. MERCAPTOPURINE [Concomitant]
     Indication: CROHN'S DISEASE
     Route: 048
  5. RANITIDINE [Concomitant]
     Indication: CROHN'S DISEASE
     Route: 048

REACTIONS (3)
  - DRUG DELIVERY SYSTEM MALFUNCTION [None]
  - INCORRECT DOSE ADMINISTERED [None]
  - SINUSITIS [None]
